FAERS Safety Report 23314983 (Version 1)
Quarter: 2023Q4

REPORT INFORMATION
  Report Type: Spontaneous
  Country: US (occurrence: US)
  Receive Date: 20231219
  Receipt Date: 20231219
  Transmission Date: 20240110
  Serious: Yes (Other)
  Sender: FDA-Public Use
  Company Number: US-ABBVIE-5548133

PATIENT
  Sex: Female

DRUGS (1)
  1. BOTOX [Suspect]
     Active Substance: ONABOTULINUMTOXINA
     Indication: Migraine
     Dosage: TIME INTERVAL: AS NECESSARY: STARTED FOR A COUPLE YEARS
     Route: 065

REACTIONS (4)
  - Cerebrovascular accident [Unknown]
  - Drooling [Unknown]
  - Hypersensitivity [Unknown]
  - Brow ptosis [Unknown]
